FAERS Safety Report 4324663-4 (Version None)
Quarter: 2004Q1

REPORT INFORMATION
  Report Type: 
  Country: None (occurrence: None)
  Receive Date: 20040325
  Receipt Date: 20040325
  Transmission Date: 20041129
  Serious: Yes (Life-Threatening)
  Sender: FDA-Public Use
  Company Number: None

PATIENT
  Age: 35 Year
  Sex: Male
  Weight: 74.8435 kg

DRUGS (1)
  1. ZOLOFT [Suspect]
     Indication: SMOKING CESSATION THERAPY
     Dosage: 50 MG DAILY ORAL
     Route: 048
     Dates: start: 20031206, end: 20040105

REACTIONS (1)
  - SUICIDE ATTEMPT [None]
